FAERS Safety Report 8793839 (Version 2)
Quarter: 2015Q2

REPORT INFORMATION
  Report Type: Report from Study
  Country: US (occurrence: US)
  Receive Date: 20120917
  Receipt Date: 20150401
  Transmission Date: 20150821
  Serious: Yes (Death)
  Sender: FDA-Public Use
  Company Number: US-ROCHE-1126356

PATIENT
  Sex: Female

DRUGS (15)
  1. OXYCODONE [Concomitant]
     Active Substance: OXYCODONE
  2. CARBOPLATIN. [Concomitant]
     Active Substance: CARBOPLATIN
     Route: 042
  3. PERCOCET [Concomitant]
     Active Substance: ACETAMINOPHEN\OXYCODONE HYDROCHLORIDE
  4. ANZEMET [Concomitant]
     Active Substance: DOLASETRON MESYLATE
     Route: 042
  5. AVASTIN [Suspect]
     Active Substance: BEVACIZUMAB
     Indication: OVARIAN CANCER
     Route: 042
     Dates: start: 20081211
  6. AVASTIN [Suspect]
     Active Substance: BEVACIZUMAB
     Indication: MALIGNANT NEOPLASM OF UTERINE ADNEXA
  7. IMODIUM [Concomitant]
     Active Substance: LOPERAMIDE HYDROCHLORIDE
  8. TAXOTERE [Concomitant]
     Active Substance: DOCETAXEL
     Route: 042
  9. CARBOPLATIN. [Concomitant]
     Active Substance: CARBOPLATIN
     Route: 042
  10. COMPAZINE [Concomitant]
     Active Substance: PROCHLORPERAZINE MALEATE
     Route: 048
  11. DURAGESIC [Concomitant]
     Active Substance: FENTANYL
  12. DECADRON [Concomitant]
     Active Substance: DEXAMETHASONE
     Route: 042
  13. DECADRON [Concomitant]
     Active Substance: DEXAMETHASONE
     Route: 042
  14. DECADRON [Concomitant]
     Active Substance: DEXAMETHASONE
     Route: 042
  15. POTASSIUM CHLORIDE. [Concomitant]
     Active Substance: POTASSIUM CHLORIDE
     Route: 042

REACTIONS (31)
  - Urinary incontinence [Unknown]
  - Vomiting [Unknown]
  - Abdominal distension [Unknown]
  - Flatulence [Unknown]
  - Death [Fatal]
  - Sedation [Unknown]
  - Thrombocytopenia [Unknown]
  - Abdominal pain upper [Unknown]
  - Catheter site erythema [Unknown]
  - Productive cough [Unknown]
  - Faecal incontinence [Unknown]
  - Abdominal pain [Unknown]
  - Rales [Unknown]
  - Quality of life decreased [Unknown]
  - Platelet count decreased [Unknown]
  - Poor quality sleep [Unknown]
  - Asthenia [Unknown]
  - Weight decreased [Unknown]
  - Erythema [Unknown]
  - Nausea [Unknown]
  - Blood glucose fluctuation [Unknown]
  - Decreased appetite [Unknown]
  - Stoma site reaction [Unknown]
  - Muscle atrophy [Unknown]
  - Diarrhoea [Unknown]
  - Micturition disorder [Unknown]
  - Burning sensation [Unknown]
  - Dizziness [Unknown]
  - Off label use [Unknown]
  - Fatigue [Unknown]
  - Thirst [Unknown]
